FAERS Safety Report 6262605-5 (Version None)
Quarter: 2009Q3

REPORT INFORMATION
  Report Type: 
  Country: None (occurrence: None)
  Receive Date: 20090709
  Receipt Date: 20090706
  Transmission Date: 20100115
  Serious: No
  Sender: FDA-Public Use
  Company Number: US-B.I. PHARMACEUTICALS,INC./RIDGEFIELD-2009-BP-08070BP

PATIENT
  Sex: Female

DRUGS (4)
  1. SPIRIVA [Suspect]
     Indication: DYSPNOEA
     Dosage: 18 MCG
     Route: 055
  2. COSOPT [Concomitant]
     Indication: GLAUCOMA
  3. PILOCARPINE HYDROCHLORIDE [Concomitant]
     Indication: GLAUCOMA
  4. LUMIGAN [Concomitant]
     Indication: GLAUCOMA

REACTIONS (1)
  - INTRAOCULAR PRESSURE INCREASED [None]
